FAERS Safety Report 4679434-6 (Version None)
Quarter: 2005Q2

REPORT INFORMATION
  Report Type: 
  Country: None (occurrence: None)
  Receive Date: 20050602
  Receipt Date: 20050502
  Transmission Date: 20051028
  Serious: Yes (Hospitalization)
  Sender: FDA-Public Use
  Company Number: 2005AP02585

PATIENT
  Age: 27805 Day
  Sex: Female
  Weight: 88 kg

DRUGS (4)
  1. IRESSA [Suspect]
     Indication: NON-SMALL CELL LUNG CANCER
     Route: 048
     Dates: start: 20050125, end: 20050320
  2. NOVONORM [Concomitant]
     Indication: DIABETES MELLITUS
     Route: 048
  3. DIURESIX [Concomitant]
     Indication: HYPERTENSION
     Route: 048
  4. CARDURA [Concomitant]
     Indication: HYPERTENSION
     Route: 048

REACTIONS (2)
  - BLOOD CREATININE INCREASED [None]
  - METABOLIC ACIDOSIS [None]
